FAERS Safety Report 8904235 (Version 2)
Quarter: 2017Q4

REPORT INFORMATION
  Report Type: Spontaneous
  Country: US (occurrence: US)
  Receive Date: 20121112
  Receipt Date: 20171215
  Transmission Date: 20180321
  Serious: Yes (Hospitalization, Other)
  Sender: FDA-Public Use
  Company Number: US-009507513-1101USA01040

PATIENT
  Sex: Female
  Weight: 73.48 kg

DRUGS (5)
  1. PROVENTIL [Concomitant]
     Active Substance: ALBUTEROL
     Dates: start: 2000, end: 2011
  2. MK-0130 [Concomitant]
     Active Substance: CYCLOBENZAPRINE
     Dates: start: 2000, end: 2011
  3. FOSAMAX [Suspect]
     Active Substance: ALENDRONATE SODIUM
     Indication: OSTEOPOROSIS
     Dosage: UNK MG, UNK
     Route: 048
     Dates: start: 20090304
  4. CYMBALTA [Concomitant]
     Active Substance: DULOXETINE HYDROCHLORIDE
     Dates: start: 2000, end: 2011
  5. FOSAMAX [Suspect]
     Active Substance: ALENDRONATE SODIUM
     Indication: OSTEOPENIA
     Dosage: 70 MG, QW
     Route: 048
     Dates: start: 2000, end: 2009

REACTIONS (33)
  - Urinary retention [Not Recovered/Not Resolved]
  - Lymphoedema [Unknown]
  - Hiatus hernia [Unknown]
  - Spinal compression fracture [Unknown]
  - Femur fracture [Unknown]
  - Menopausal symptoms [Unknown]
  - Gastrointestinal disorder [Unknown]
  - Colon adenoma [Unknown]
  - Osteoarthritis [Unknown]
  - Injury [Unknown]
  - Hypothyroidism [Unknown]
  - Barrett^s oesophagus [Unknown]
  - Patellofemoral pain syndrome [Unknown]
  - Osteoarthritis [Unknown]
  - Hip arthroplasty [Unknown]
  - Femur fracture [Unknown]
  - Low turnover osteopathy [Unknown]
  - Postmenopausal haemorrhage [Unknown]
  - Haemorrhagic anaemia [Recovered/Resolved]
  - Hypoglycaemia [Unknown]
  - Hormone level abnormal [Unknown]
  - Bone cyst [Unknown]
  - Uterine leiomyoma [Unknown]
  - Sciatica [Unknown]
  - Non-cardiac chest pain [Recovered/Resolved]
  - Fracture nonunion [Unknown]
  - Gastrooesophageal reflux disease [Unknown]
  - Osteoarthritis [Unknown]
  - Lymphoedema [Not Recovered/Not Resolved]
  - Cystitis [Not Recovered/Not Resolved]
  - Osteoporosis [Not Recovered/Not Resolved]
  - Ovarian cyst [Unknown]
  - Tooth disorder [Unknown]

NARRATIVE: CASE EVENT DATE: 20020724
